FAERS Safety Report 24549155 (Version 1)
Quarter: 2024Q4

REPORT INFORMATION
  Report Type: Spontaneous
  Country: ES (occurrence: ES)
  Receive Date: 20241025
  Receipt Date: 20241025
  Transmission Date: 20250115
  Serious: Yes (Other)
  Sender: BOEHRINGER INGELHEIM
  Company Number: None

PATIENT
  Age: 72 Year
  Sex: Male

DRUGS (13)
  1. PRADAXA [Suspect]
     Active Substance: DABIGATRAN ETEXILATE MESYLATE
     Indication: Atrial fibrillation
     Route: 048
     Dates: start: 20240926, end: 20241016
  2. LEVOTHYROXINE SODIUM [Concomitant]
     Active Substance: LEVOTHYROXINE SODIUM
     Indication: Gastric cancer
     Dosage: 100.0 MCG LUNCH-BREAKFAST
     Route: 048
     Dates: start: 20210506
  3. ACIDO F?LICO ASPOL 10MG C?PSULAS DURAS , 50 c?psulas [Concomitant]
     Indication: Arthralgia
     Dosage: 10.0 MG LUNCH-BREAKFAST
     Route: 048
     Dates: start: 20231219
  4. CALCIFEDIOL [Concomitant]
     Active Substance: CALCIFEDIOL
     Indication: Gastric cancer
     Route: 048
     Dates: start: 20191002
  5. BESITRAN 100 mg COMPRIMIDOS RECUBIERTOS CON PELICULA , 30 comprimidos [Concomitant]
     Indication: Gastric cancer
     Route: 048
     Dates: start: 20220202
  6. PARACETAMOL CINFA 1 g COMPRIMIDOS EFG , 40 comprimidos [Concomitant]
     Indication: Gastric cancer
     Route: 048
     Dates: start: 20181128
  7. CYANOCOBALAMIN [Concomitant]
     Active Substance: CYANOCOBALAMIN
     Indication: Dermatitis
     Route: 030
     Dates: start: 20221221
  8. KREON 25.000 U c?psulas duras gastrorresistentes, 100 c?psulas [Concomitant]
     Indication: Gastric cancer
     Dosage: 3.0 CAPS BREAKFAST-LUNCH-AFTERNOON-DINNER
     Route: 048
     Dates: start: 20180615
  9. PROLIA 60 mg SOLUCION INYECTABLE EN JERINGA PRECARGADA, 1 jeringa prec [Concomitant]
     Indication: Pathological fracture
     Route: 058
     Dates: start: 20220720
  10. CADELIUS D 600 MG/1000 UI COMPRIMIDOS BUCODISPERSABLES , 30 comprimido [Concomitant]
     Indication: Pathological fracture
     Dosage: 1.0 TABLET DINNER
     Route: 048
     Dates: start: 20231212
  11. LORAZEPAM CINFA 1 mg COMPRIMIDOS EFG, 50 comprimidos [Concomitant]
     Indication: Insomnia
     Dosage: NIGHT
     Route: 048
     Dates: start: 20160923
  12. EMCONCOR COR  2,5 mg COMPRIMIDOS RECUBIERTOS CON PELICULA , 28 comprim [Concomitant]
     Indication: Atrial fibrillation
     Dosage: LUNCH-BREAKFAST DINNER
     Route: 048
     Dates: start: 20240418
  13. DEXAMETHASONE [Concomitant]
     Active Substance: DEXAMETHASONE
     Indication: Gastric cancer
     Dosage: BREAKFAST
     Route: 048
     Dates: start: 20240921, end: 20241005

REACTIONS (3)
  - Fatigue [Recovered/Resolved]
  - Fatigue [Recovered/Resolved]
  - Hypersomnia [Recovered/Resolved]

NARRATIVE: CASE EVENT DATE: 20240929
